APPROVED DRUG PRODUCT: ACETAZOLAMIDE
Active Ingredient: ACETAZOLAMIDE
Strength: 125MG
Dosage Form/Route: TABLET;ORAL
Application: A207503 | Product #001
Applicant: BRECKENRIDGE PHARMACEUTICAL INC
Approved: Apr 30, 2020 | RLD: No | RS: No | Type: DISCN